FAERS Safety Report 10904779 (Version 3)
Quarter: 2017Q3

REPORT INFORMATION
  Report Type: Spontaneous
  Country: JP (occurrence: JP)
  Receive Date: 20150311
  Receipt Date: 20170929
  Transmission Date: 20171127
  Serious: Yes (Other)
  Sender: FDA-Public Use
  Company Number: JP-MALLINCKRODT-T201304549

PATIENT
  Age: 54 Year
  Sex: Female
  Weight: 77 kg

DRUGS (14)
  1. METHADONE [Suspect]
     Active Substance: METHADONE HYDROCHLORIDE
     Dosage: 15 MG TID
     Route: 048
     Dates: start: 20130705, end: 20130812
  2. MS TWICELON [Concomitant]
     Dosage: 720 MG, UNK
     Route: 048
     Dates: start: 20060314, end: 20130704
  3. ERIBULIN MESILATE [Concomitant]
     Active Substance: ERIBULIN
     Indication: PRODUCT USED FOR UNKNOWN INDICATION
     Route: 051
  4. MS TWICELON [Concomitant]
     Indication: PRODUCT USED FOR UNKNOWN INDICATION
     Dosage: 180 MG, UNK
     Route: 048
     Dates: start: 20130812, end: 20130902
  5. METHADONE [Suspect]
     Active Substance: METHADONE HYDROCHLORIDE
     Dosage: 15 MG, QID
     Route: 048
     Dates: start: 20130812
  6. METHADONE [Suspect]
     Active Substance: METHADONE HYDROCHLORIDE
     Indication: CANCER PAIN
     Dosage: 5 MG TID
     Route: 048
     Dates: start: 20130604, end: 20130705
  7. METHADONE [Suspect]
     Active Substance: METHADONE HYDROCHLORIDE
     Dosage: 140 MG
     Route: 048
  8. HALAVEN [Concomitant]
     Active Substance: ERIBULIN MESYLATE
     Dosage: 2.3 MG, UNK
     Route: 051
     Dates: start: 20130621, end: 20130830
  9. DOCETAXEL. [Concomitant]
     Active Substance: DOCETAXEL
     Indication: PRODUCT USED FOR UNKNOWN INDICATION
     Route: 051
  10. METHADONE [Suspect]
     Active Substance: METHADONE HYDROCHLORIDE
     Dosage: 120 MG
     Route: 048
     Dates: start: 201311
  11. OXINORM [Concomitant]
     Active Substance: OXYCODONE HYDROCHLORIDE
     Indication: PRODUCT USED FOR UNKNOWN INDICATION
     Dosage: 40 MG, PRN
     Route: 048
     Dates: start: 20130603
  12. METHADONE [Suspect]
     Active Substance: METHADONE HYDROCHLORIDE
     Dosage: 80 MG
     Route: 048
     Dates: start: 201403
  13. MS TWICELON [Concomitant]
     Dosage: 360 MG, UNK
     Route: 048
     Dates: start: 20130705, end: 20130811
  14. PACLITAXEL. [Concomitant]
     Active Substance: PACLITAXEL
     Dosage: 1.25 MG, UNK
     Route: 051
     Dates: start: 20130906

REACTIONS (7)
  - Cognitive disorder [Unknown]
  - Dizziness [Recovered/Resolved]
  - Thirst [Recovered/Resolved]
  - Somnolence [Not Recovered/Not Resolved]
  - Electrocardiogram QT prolonged [Recovering/Resolving]
  - Dyspnoea [Recovered/Resolved]
  - Somnolence [Recovering/Resolving]

NARRATIVE: CASE EVENT DATE: 20130604
